FAERS Safety Report 4473441-4 (Version None)
Quarter: 2004Q3

REPORT INFORMATION
  Report Type: 
  Country: None (occurrence: None)
  Receive Date: 20040909
  Receipt Date: 20040512
  Transmission Date: 20050211
  Serious: Yes (Life-Threatening)
  Sender: FDA-Public Use
  Company Number: A03200401524

PATIENT
  Age: 61 Year
  Sex: Female
  Weight: 76.2043 kg

DRUGS (4)
  1. ELOXATIN [Suspect]
     Indication: COLON CANCER METASTATIC
     Dosage: 120 MG OTHER - INTRAVENOUS NOS
     Route: 042
     Dates: start: 20040510, end: 20040510
  2. ELOXATIN [Suspect]
     Indication: METASTASES TO LIVER
     Dosage: 120 MG OTHER - INTRAVENOUS NOS
     Route: 042
     Dates: start: 20040510, end: 20040510
  3. FLUOROURACIL [Concomitant]
  4. LEUCOCORIN [Concomitant]

REACTIONS (4)
  - HYPOAESTHESIA ORAL [None]
  - HYPOTENSION [None]
  - PRURITUS [None]
  - TINNITUS [None]
